FAERS Safety Report 6866363-2 (Version None)
Quarter: 2010Q2

REPORT INFORMATION
  Report Type: 
  Country: None (occurrence: None)
  Receive Date: 20100602
  Receipt Date: 20090903
  Transmission Date: 20101027
  Serious: Yes (Other)
  Sender: FDA-Public Use
  Company Number: 208145USA

PATIENT
  Age: 67 Year
  Sex: Female

DRUGS (3)
  1. ACICLOVIR 200 MG CAPSULES (ACICLOVIR) [Suspect]
     Dates: start: 20050101
  2. MYCOPHENOLATE MOFETIL [Suspect]
     Indication: INTERSTITIAL LUNG DISEASE
     Dosage: 2000 MG (1000 MG, 2 IN 1 D), ORAL
     Route: 048
     Dates: start: 20030101
  3. MYCOPHENOLATE MOFETIL [Suspect]
     Indication: POLYMYOSITIS
     Dosage: 2000 MG (1000 MG, 2 IN 1 D), ORAL
     Route: 048
     Dates: start: 20030101

REACTIONS (1)
  - HERPES SIMPLEX OPHTHALMIC [None]
